FAERS Safety Report 11927463 (Version 1)
Quarter: 2016Q1

REPORT INFORMATION
  Report Type: Spontaneous
  Country: US (occurrence: None)
  Receive Date: 20160115
  Receipt Date: 20160115
  Transmission Date: 20160526
  Serious: No
  Sender: FDA-Public Use
  Company Number: None

PATIENT
  Age: 39 Year
  Sex: Female
  Weight: 120.2 kg

DRUGS (11)
  1. IBUPROFEN. [Concomitant]
     Active Substance: IBUPROFEN
  2. VITAMIN D3 [Concomitant]
     Active Substance: CHOLECALCIFEROL
  3. CAMBIA [Concomitant]
     Active Substance: DICLOFENAC POTASSIUM
  4. CANE [Concomitant]
  5. AMPYRA [Suspect]
     Active Substance: DALFAMPRIDINE
     Indication: MULTIPLE SCLEROSIS
     Dosage: 1 TABLET EVERY 12 HOURS
     Route: 048
     Dates: start: 20151230, end: 20160108
  6. BACLOFEN. [Concomitant]
     Active Substance: BACLOFEN
  7. ALLEGRA [Concomitant]
     Active Substance: FEXOFENADINE HYDROCHLORIDE
  8. COPAXONE [Concomitant]
     Active Substance: GLATIRAMER ACETATE
  9. AMERGE [Concomitant]
     Active Substance: NARATRIPTAN HYDROCHLORIDE
  10. MULTIVITAMIN [Concomitant]
     Active Substance: VITAMINS
  11. TOPAMAX [Concomitant]
     Active Substance: TOPIRAMATE

REACTIONS (4)
  - Depression [None]
  - Social avoidant behaviour [None]
  - Depressed mood [None]
  - Headache [None]

NARRATIVE: CASE EVENT DATE: 20160102
